FAERS Safety Report 22536205 (Version 3)
Quarter: 2023Q4

REPORT INFORMATION
  Report Type: Spontaneous
  Country: US (occurrence: US)
  Receive Date: 20230608
  Receipt Date: 20231129
  Transmission Date: 20240110
  Serious: No
  Sender: FDA-Public Use
  Company Number: US-SA-SAC20230607001441

PATIENT
  Age: 62 Year
  Sex: Male

DRUGS (3)
  1. JEVTANA [Suspect]
     Active Substance: CABAZITAXEL
     Indication: Prostate cancer
     Dosage: 40 MG, Q3W
     Route: 040
     Dates: start: 20230420
  2. JEVTANA [Suspect]
     Active Substance: CABAZITAXEL
     Dosage: 600 MG, Q3W
     Route: 041
     Dates: start: 20230426
  3. JEVTANA [Suspect]
     Active Substance: CABAZITAXEL
     Dosage: 32 MG, QOW
     Route: 040
     Dates: start: 20231116

REACTIONS (2)
  - Weight increased [Unknown]
  - Incorrect dose administered [Unknown]

NARRATIVE: CASE EVENT DATE: 20230605
